FAERS Safety Report 21548962 (Version 1)
Quarter: 2022Q4

REPORT INFORMATION
  Report Type: Spontaneous
  Country: AU (occurrence: AU)
  Receive Date: 20221103
  Receipt Date: 20221103
  Transmission Date: 20230113
  Serious: Yes (Other)
  Sender: FDA-Public Use
  Company Number: AU-LUNDBECK-DKLU3053826

PATIENT
  Age: 46 Year
  Sex: Female

DRUGS (1)
  1. ABILIFY MAINTENA [Suspect]
     Active Substance: ARIPIPRAZOLE
     Indication: Product used for unknown indication
     Route: 065

REACTIONS (25)
  - Altered state of consciousness [Not Recovered/Not Resolved]
  - Eyelid irritation [Not Recovered/Not Resolved]
  - Lung disorder [Not Recovered/Not Resolved]
  - Miliaria [Not Recovered/Not Resolved]
  - Nerve injury [Not Recovered/Not Resolved]
  - Skin injury [Not Recovered/Not Resolved]
  - Unevaluable event [Not Recovered/Not Resolved]
  - Feeling hot [Not Recovered/Not Resolved]
  - Hair disorder [Not Recovered/Not Resolved]
  - Pain in jaw [Not Recovered/Not Resolved]
  - Posture abnormal [Not Recovered/Not Resolved]
  - Swelling [Not Recovered/Not Resolved]
  - Taste disorder [Not Recovered/Not Resolved]
  - Toothache [Not Recovered/Not Resolved]
  - Joint stiffness [Not Recovered/Not Resolved]
  - Increased appetite [Not Recovered/Not Resolved]
  - Vulvovaginal dryness [Not Recovered/Not Resolved]
  - Pain in extremity [Not Recovered/Not Resolved]
  - Injection site pain [Not Recovered/Not Resolved]
  - Headache [Not Recovered/Not Resolved]
  - Nausea [Not Recovered/Not Resolved]
  - Abdominal discomfort [Not Recovered/Not Resolved]
  - Arthralgia [Not Recovered/Not Resolved]
  - Urticaria [Not Recovered/Not Resolved]
  - Product complaint [Not Recovered/Not Resolved]

NARRATIVE: CASE EVENT DATE: 20220408
